FAERS Safety Report 6753048-6 (Version None)
Quarter: 2010Q2

REPORT INFORMATION
  Report Type: 
  Country: None (occurrence: None)
  Receive Date: 20100602
  Receipt Date: 20100602
  Transmission Date: 20101027
  Serious: Yes (Other)
  Sender: FDA-Public Use
  Company Number: None

PATIENT
  Sex: Female
  Weight: 54.4316 kg

DRUGS (1)
  1. CYMBALTA [Suspect]
     Indication: DEPRESSION
     Dosage: 30 MG 1-DAY
     Dates: start: 20100511

REACTIONS (6)
  - ABASIA [None]
  - ABDOMINAL PAIN UPPER [None]
  - HEADACHE [None]
  - HYPOVENTILATION [None]
  - MYALGIA [None]
  - VISION BLURRED [None]
